FAERS Safety Report 6895504-6 (Version None)
Quarter: 2010Q3

REPORT INFORMATION
  Report Type: 
  Country: None (occurrence: None)
  Receive Date: 20100728
  Receipt Date: 20100714
  Transmission Date: 20110219
  Serious: Yes (Death)
  Sender: FDA-Public Use
  Company Number: 2010088289

PATIENT
  Age: 58 Year
  Sex: Male

DRUGS (6)
  1. FRAGMIN [Suspect]
     Indication: THROMBOSIS PROPHYLAXIS
     Dosage: 18000 IU, DAILY, SUBCUTANEOUS
     Route: 058
     Dates: start: 20100701, end: 20100713
  2. FUROSEMIDE [Concomitant]
  3. METFORMIN HCL [Concomitant]
  4. SIMETHICONE (SIMETICONE) [Concomitant]
  5. MORPHINE SULFATE INJ [Concomitant]
  6. SPIRONOLACTONE [Concomitant]

REACTIONS (2)
  - HEPATIC NEOPLASM MALIGNANT [None]
  - MALIGNANT NEOPLASM PROGRESSION [None]
